FAERS Safety Report 17120534 (Version 2)
Quarter: 2020Q2

REPORT INFORMATION
  Report Type: Spontaneous
  Country: US (occurrence: US)
  Receive Date: 20191206
  Receipt Date: 20200519
  Transmission Date: 20200713
  Serious: Yes (Other)
  Sender: FDA-Public Use
  Company Number: US-ASTRAZENECA-2019SF73142

PATIENT
  Age: 23170 Day
  Sex: Female
  Weight: 75.8 kg

DRUGS (30)
  1. BENZONATATE. [Concomitant]
     Active Substance: BENZONATATE
     Dates: start: 20130110
  2. LYRICA [Concomitant]
     Active Substance: PREGABALIN
     Dates: start: 20150312
  3. AZITHROMYCIN ANHYDROUS. [Concomitant]
     Active Substance: AZITHROMYCIN ANHYDROUS
     Dates: start: 20110711
  4. CIPROFLOXACIN. [Concomitant]
     Active Substance: CIPROFLOXACIN
     Dates: start: 20090227
  5. TORSEMIDE. [Concomitant]
     Active Substance: TORSEMIDE
     Dates: start: 20130205
  6. FLUCONAZOLE. [Concomitant]
     Active Substance: FLUCONAZOLE
     Dates: start: 20131205
  7. FAMOTIDINE. [Concomitant]
     Active Substance: FAMOTIDINE
     Dates: start: 20130212
  8. LOSARTAN. [Concomitant]
     Active Substance: LOSARTAN
     Dates: start: 20121004
  9. GLYBURIDE. [Concomitant]
     Active Substance: GLYBURIDE
     Dates: start: 20130202
  10. SPIRONOLACTONE. [Concomitant]
     Active Substance: SPIRONOLACTONE
     Dates: start: 20130501
  11. HYDROCODONE [Concomitant]
     Active Substance: HYDROCODONE
     Dates: start: 20110907
  12. FUROSEMIDE. [Concomitant]
     Active Substance: FUROSEMIDE
     Dates: start: 20111101
  13. ONDANSETRON [Concomitant]
     Active Substance: ONDANSETRON
     Dates: start: 20141103
  14. POTASSIUM CHLORIDE. [Concomitant]
     Active Substance: POTASSIUM CHLORIDE
     Dates: start: 20130306
  15. PROPOXYPHENE. [Concomitant]
     Active Substance: PROPOXYPHENE
     Dates: start: 20090227
  16. NEXIUM [Suspect]
     Active Substance: ESOMEPRAZOLE MAGNESIUM
     Route: 048
     Dates: start: 2011, end: 2016
  17. NEXIUM 24HR [Suspect]
     Active Substance: ESOMEPRAZOLE MAGNESIUM
     Route: 048
     Dates: start: 2011, end: 2016
  18. METRONIDAZOLE. [Concomitant]
     Active Substance: METRONIDAZOLE
     Dates: start: 20130325
  19. METHYLPREDNISOLONE. [Concomitant]
     Active Substance: METHYLPREDNISOLONE
     Dates: start: 20080819
  20. TRAMADOL. [Concomitant]
     Active Substance: TRAMADOL
     Dates: start: 20140715
  21. PANTOPRAZOLE [Concomitant]
     Active Substance: PANTOPRAZOLE
     Dates: start: 20140512
  22. MELOXICAM. [Concomitant]
     Active Substance: MELOXICAM
     Dates: start: 20140518
  23. HYDRALAZINE [Concomitant]
     Active Substance: HYDRALAZINE HYDROCHLORIDE
     Dates: start: 20130325
  24. DOXYCYCLINE. [Concomitant]
     Active Substance: DOXYCYCLINE
     Dates: start: 20130107
  25. PREDNISONE. [Concomitant]
     Active Substance: PREDNISONE
     Dates: start: 20130107
  26. AMOXICILLIN. [Concomitant]
     Active Substance: AMOXICILLIN
     Dates: start: 20110907
  27. HYDROCORTISONE. [Concomitant]
     Active Substance: HYDROCORTISONE
     Dates: start: 20110711
  28. CARVEDILOL. [Concomitant]
     Active Substance: CARVEDILOL
     Dates: start: 20111101
  29. PENICILLIN [Concomitant]
     Active Substance: PENICILLIN
     Dates: start: 20140518
  30. BACLOFEN. [Concomitant]
     Active Substance: BACLOFEN
     Dates: start: 20141217

REACTIONS (4)
  - Renal failure [Unknown]
  - End stage renal disease [Unknown]
  - Chronic kidney disease [Unknown]
  - Acute kidney injury [Unknown]

NARRATIVE: CASE EVENT DATE: 20130114
